FAERS Safety Report 12239985 (Version 1)
Quarter: 2016Q2

REPORT INFORMATION
  Report Type: Spontaneous
  Country: US (occurrence: US)
  Receive Date: 20160405
  Receipt Date: 20160405
  Transmission Date: 20160815
  Serious: No
  Sender: FDA-Public Use
  Company Number: US-ROCHE-1636480

PATIENT
  Sex: Male

DRUGS (1)
  1. XENICAL [Suspect]
     Active Substance: ORLISTAT
     Indication: WEIGHT DECREASED
     Dosage: 3 TIMES A DAY BEFORE MEALS
     Route: 065
     Dates: start: 201509

REACTIONS (4)
  - Faeces soft [Unknown]
  - Frequent bowel movements [Not Recovered/Not Resolved]
  - Faeces discoloured [Unknown]
  - Defaecation urgency [Unknown]
